FAERS Safety Report 6405963-0 (Version None)
Quarter: 2009Q4

REPORT INFORMATION
  Report Type: 
  Country: None (occurrence: None)
  Receive Date: 20091019
  Receipt Date: 20091008
  Transmission Date: 20100525
  Serious: Yes (Death, Hospitalization)
  Sender: FDA-Public Use
  Company Number: JP-ROCHE-654346

PATIENT
  Sex: Female
  Weight: 48.4 kg

DRUGS (10)
  1. CAPECITABINE [Suspect]
     Route: 065
     Dates: start: 20090602, end: 20090714
  2. CAPECITABINE [Suspect]
     Route: 065
     Dates: end: 20090820
  3. CAPECITABINE [Suspect]
     Route: 065
     Dates: start: 20090826
  4. SUNITINIB MALATE [Suspect]
     Route: 048
     Dates: start: 20090602, end: 20090622
  5. SUNITINIB MALATE [Suspect]
     Route: 048
     Dates: start: 20090623, end: 20090714
  6. SUNITINIB MALATE [Suspect]
     Route: 048
     Dates: start: 20090804, end: 20090813
  7. PYRIDOXAL PHOSPHATE [Concomitant]
     Indication: PROPHYLAXIS
     Dosage: DRUG REPORTED AS PYRIDOXAL
     Route: 048
     Dates: start: 20090602
  8. LOXOPROFEN [Concomitant]
     Indication: BACK PAIN
     Dosage: TAKEN WHEN NEEDED
     Route: 048
     Dates: start: 20090609
  9. REBAMIPIDE [Concomitant]
     Indication: PROPHYLAXIS
     Dosage: OTHER INDICATION: NAUSEA
     Route: 048
     Dates: start: 20090609
  10. LAPATINIB [Concomitant]
     Dates: start: 20090826

REACTIONS (11)
  - DECREASED APPETITE [None]
  - HEPATIC FUNCTION ABNORMAL [None]
  - MALAISE [None]
  - MALIGNANT NEOPLASM PROGRESSION [None]
  - MALIGNANT PLEURAL EFFUSION [None]
  - NAUSEA [None]
  - NEUTROPENIA [None]
  - PYREXIA [None]
  - SKIN DISCOLOURATION [None]
  - STOMATITIS [None]
  - SWELLING FACE [None]
